FAERS Safety Report 18406748 (Version 2)
Quarter: 2020Q4

REPORT INFORMATION
  Report Type: Other
  Country: SK (occurrence: SK)
  Receive Date: 20201020
  Receipt Date: 20201102
  Transmission Date: 20210114
  Serious: Yes (Hospitalization, Other)
  Sender: FDA-Public Use
  Company Number: SK-ROCHE-2698315

PATIENT
  Age: 74 Year
  Sex: Male

DRUGS (1)
  1. ACTILYSE [Suspect]
     Active Substance: ALTEPLASE
     Indication: PULMONARY EMBOLISM
     Dosage: 50 MG FOLLOWED BY ANOTHER 50 MG DURING 2 HOURS FREQUENCY: 1, FREQUENCY UNIT: 809
     Route: 042

REACTIONS (2)
  - Respiratory tract infection bacterial [Unknown]
  - Drug ineffective [Unknown]
